FAERS Safety Report 7943403-0 (Version None)
Quarter: 2011Q4

REPORT INFORMATION
  Report Type: 
  Country: None (occurrence: None)
  Receive Date: 20111128
  Receipt Date: 20111116
  Transmission Date: 20120403
  Serious: Yes (Hospitalization)
  Sender: FDA-Public Use
  Company Number: US-ELI_LILLY_AND_COMPANY-US201111006881

PATIENT
  Sex: Female

DRUGS (5)
  1. NEXIUM [Concomitant]
  2. FORTEO [Suspect]
     Indication: OSTEOPOROSIS
     Dosage: 20 UG, QD
     Route: 065
  3. GABAPENTIN [Concomitant]
  4. JANUVIA [Concomitant]
  5. ATENOLOL [Concomitant]

REACTIONS (1)
  - HYPONATRAEMIA [None]
